FAERS Safety Report 14498551 (Version 4)
Quarter: 2019Q1

REPORT INFORMATION
  Report Type: Report from Study
  Country: FR (occurrence: FR)
  Receive Date: 20180207
  Receipt Date: 20190321
  Transmission Date: 20190417
  Serious: Yes (Hospitalization, Other)
  Sender: FDA-Public Use
  Company Number: PHHY2016FR132704

PATIENT
  Age: 62 Year
  Sex: Male

DRUGS (33)
  1. CERTICAN [Suspect]
     Active Substance: EVEROLIMUS
     Dosage: 1.5 MG, BID
     Route: 048
     Dates: start: 20171114
  2. BISOPROLOL [Concomitant]
     Active Substance: BISOPROLOL
     Indication: HYPERTENSION
     Dosage: 2.5 MG, BID
     Route: 065
     Dates: start: 20140201
  3. ESOMEPRAZOL [Concomitant]
     Active Substance: ESOMEPRAZOLE
     Dosage: 20 MG, UNK
     Route: 065
     Dates: start: 20170309
  4. FENOFIBRATE. [Concomitant]
     Active Substance: FENOFIBRATE
     Dosage: 160 MG, UNK
     Route: 065
     Dates: start: 20170309
  5. CERTICAN [Suspect]
     Active Substance: EVEROLIMUS
     Indication: LIVER TRANSPLANT
     Dosage: 1.5 MG, BID
     Route: 048
     Dates: start: 201402
  6. CERTICAN [Suspect]
     Active Substance: EVEROLIMUS
     Dosage: 4 MG, QD
     Route: 048
     Dates: start: 20150730, end: 20160210
  7. MYFORTIC [Suspect]
     Active Substance: MYCOPHENOLATE SODIUM
     Dosage: 360 MG, BID
     Route: 065
     Dates: start: 20170614
  8. PREVISCAN [Concomitant]
     Indication: THROMBOSIS
     Dosage: UNK
     Route: 065
     Dates: start: 20140317, end: 20141010
  9. ESOMEPRAZOL [Concomitant]
     Active Substance: ESOMEPRAZOLE
     Indication: PROPHYLAXIS
     Dosage: 20 MG, UNK
     Route: 065
     Dates: start: 20160322
  10. BISOPROLOL [Concomitant]
     Active Substance: BISOPROLOL
     Dosage: 2.5 MG, UNK
     Dates: end: 20171018
  11. MYFORTIC [Suspect]
     Active Substance: MYCOPHENOLATE SODIUM
     Dosage: 1440 MG, QD
     Route: 065
     Dates: start: 20140723
  12. CERTICAN [Suspect]
     Active Substance: EVEROLIMUS
     Indication: IMMUNOSUPPRESSANT DRUG THERAPY
     Dosage: 5.5 MG, QD
     Route: 048
     Dates: start: 20140723, end: 20150716
  13. CERTICAN [Suspect]
     Active Substance: EVEROLIMUS
     Dosage: 3.5 MG, QD
     Route: 048
     Dates: start: 20160210, end: 20170214
  14. CERTICAN [Suspect]
     Active Substance: EVEROLIMUS
     Dosage: 2 MG, QD
     Route: 048
     Dates: start: 20171019, end: 20171217
  15. CERTICAN [Suspect]
     Active Substance: EVEROLIMUS
     Dosage: 4.5 MG, QD
     Route: 048
     Dates: start: 20150717, end: 20150729
  16. MYFORTIC [Suspect]
     Active Substance: MYCOPHENOLATE SODIUM
     Indication: IMMUNOSUPPRESSANT DRUG THERAPY
     Dosage: 1440 MG, QD
     Route: 065
     Dates: start: 20140212
  17. MYFORTIC [Suspect]
     Active Substance: MYCOPHENOLATE SODIUM
     Dosage: 720 MG, QD
     Route: 065
     Dates: start: 20170615
  18. MYFORTIC [Suspect]
     Active Substance: MYCOPHENOLATE SODIUM
     Dosage: 360 MG, BID
     Route: 065
     Dates: start: 20171018
  19. FLUINDIONA [Concomitant]
     Dosage: 0.75 UNK, UNK
     Route: 065
     Dates: end: 20171018
  20. CERTICAN [Suspect]
     Active Substance: EVEROLIMUS
     Dosage: 1.5 MG, QD
     Route: 048
     Dates: start: 20171218
  21. MYFORTIC [Suspect]
     Active Substance: MYCOPHENOLATE SODIUM
     Indication: LIVER TRANSPLANT
     Dosage: 720 MG, BID
     Route: 065
     Dates: start: 201402
  22. INNOHEP [Concomitant]
     Active Substance: TINZAPARIN SODIUM
     Indication: THROMBOSIS
     Dosage: UNK
     Route: 065
     Dates: start: 20140402, end: 20141010
  23. BISOPROLOL [Concomitant]
     Active Substance: BISOPROLOL
     Dosage: 2.5 MG, BID
     Route: 065
     Dates: start: 20170309
  24. ESOMEPRAZOL [Concomitant]
     Active Substance: ESOMEPRAZOLE
     Dosage: 20 MG, UNK
     Route: 065
     Dates: end: 20171018
  25. FLUINDIONA [Concomitant]
     Indication: PROPHYLAXIS
     Dosage: 0.75 MG, UNK
     Route: 065
     Dates: start: 20140317
  26. CERTICAN [Suspect]
     Active Substance: EVEROLIMUS
     Dosage: 3 MG, QD
     Route: 048
     Dates: start: 20170215
  27. CERTICAN [Suspect]
     Active Substance: EVEROLIMUS
     Dosage: 1 MG, BID
     Route: 048
     Dates: start: 20171018
  28. CERTICAN [Suspect]
     Active Substance: EVEROLIMUS
     Dosage: 0.75 MG, BID
     Route: 048
     Dates: start: 20171201
  29. DELURSAN [Concomitant]
     Active Substance: URSODIOL
     Indication: CHOLESTASIS
     Dosage: 750 MG, UNK
     Route: 065
     Dates: start: 20140413, end: 20150106
  30. FLUINDIONA [Concomitant]
     Dosage: 0.75 MG, BID
     Route: 065
     Dates: start: 20170309
  31. FENOFIBRATE. [Concomitant]
     Active Substance: FENOFIBRATE
     Indication: DYSLIPIDAEMIA
     Dosage: 160 MG, UNK
     Dates: start: 20141007
  32. FENOFIBRATE. [Concomitant]
     Active Substance: FENOFIBRATE
     Dosage: 160 UNK, UNK
     Route: 065
     Dates: end: 20171018
  33. METFORMIN [Concomitant]
     Active Substance: METFORMIN HYDROCHLORIDE
     Indication: HYPERGLYCAEMIA
     Dosage: 500 OT, BID
     Dates: start: 20170614, end: 20171018

REACTIONS (24)
  - Cholestasis [Recovered/Resolved]
  - Overdose [Recovered/Resolved]
  - Pharyngitis [Recovered/Resolved]
  - Dyslipidaemia [Not Recovered/Not Resolved]
  - Weight decreased [Recovered/Resolved]
  - Gastrooesophageal reflux disease [Recovered/Resolved]
  - Pulmonary embolism [Recovered/Resolved]
  - Colon adenoma [Recovered/Resolved]
  - Anaemia [Recovered/Resolved]
  - Hypercholesterolaemia [Not Recovered/Not Resolved]
  - Polyuria [Unknown]
  - Influenza [Recovered/Resolved]
  - Weight increased [Recovered/Resolved]
  - Cough [Recovered/Resolved]
  - Abdominal pain upper [Recovered/Resolved]
  - Neutropenia [Recovered/Resolved]
  - Hyperglycaemia [Unknown]
  - Overdose [Recovered/Resolved]
  - Oedema [Recovered/Resolved]
  - Anaemia [Not Recovered/Not Resolved]
  - Oedema peripheral [Unknown]
  - Gamma-glutamyltransferase increased [Not Recovered/Not Resolved]
  - Hyperlipidaemia [Not Recovered/Not Resolved]
  - Dyspnoea [Recovered/Resolved]

NARRATIVE: CASE EVENT DATE: 2014
